FAERS Safety Report 5957498-7 (Version None)
Quarter: 2008Q4

REPORT INFORMATION
  Report Type: 
  Country: None (occurrence: None)
  Receive Date: 20081113
  Receipt Date: 20081028
  Transmission Date: 20090506
  Serious: Yes (Hospitalization)
  Sender: FDA-Public Use
  Company Number: B0545208A

PATIENT
  Sex: 0

DRUGS (1)
  1. ACYCLOVIR [Suspect]
     Indication: HERPES ZOSTER

REACTIONS (1)
  - OESOPHAGEAL RUPTURE [None]
